FAERS Safety Report 7379733-3 (Version None)
Quarter: 2011Q1

REPORT INFORMATION
  Report Type: 
  Country: None (occurrence: None)
  Receive Date: 20110329
  Receipt Date: 20110321
  Transmission Date: 20110831
  Serious: No
  Sender: FDA-Public Use
  Company Number: US-PFIZER INC-2011063128

PATIENT
  Sex: Female

DRUGS (1)
  1. CELEBREX [Suspect]
     Dosage: 200 MG, UNK

REACTIONS (4)
  - OEDEMA PERIPHERAL [None]
  - BREAST SWELLING [None]
  - JOINT SWELLING [None]
  - GAIT DISTURBANCE [None]
